FAERS Safety Report 5261054-6 (Version None)
Quarter: 2007Q1

REPORT INFORMATION
  Report Type: 
  Country: None (occurrence: None)
  Receive Date: 20070309
  Receipt Date: 20070226
  Transmission Date: 20070707
  Serious: Yes (Death, Hospitalization, Other)
  Sender: FDA-Public Use
  Company Number: JP-ELI_LILLY_AND_COMPANY-JP200612004004

PATIENT
  Age: 73 Year
  Sex: Female

DRUGS (4)
  1. GEMZAR [Suspect]
     Indication: PANCREATIC CARCINOMA
     Dosage: 1000 MG/M2, OTHER
     Route: 013
     Dates: start: 20050101
  2. GEMZAR [Suspect]
     Dosage: 1000 MG/M2, WEEKLY (1/W)
     Route: 013
  3. FLUOROURACIL [Concomitant]
     Indication: PANCREATIC CARCINOMA
     Dosage: 500 MG/M2, DAILY (1/D)
     Route: 013
     Dates: start: 20050101
  4. FLUOROURACIL [Concomitant]
     Dosage: 500 MG/M2, WEEKLY (1/W)
     Route: 013

REACTIONS (4)
  - CARCINOEMBRYONIC ANTIGEN INCREASED [None]
  - DISSEMINATED INTRAVASCULAR COAGULATION [None]
  - JAUNDICE CHOLESTATIC [None]
  - MALIGNANT NEOPLASM PROGRESSION [None]
